FAERS Safety Report 22050091 (Version 1)
Quarter: 2023Q1

REPORT INFORMATION
  Report Type: Spontaneous
  Country: US (occurrence: US)
  Receive Date: 20230301
  Receipt Date: 20230301
  Transmission Date: 20230417
  Serious: No
  Sender: FDA-Public Use
  Company Number: US-drreddys-SPO/USA/23/0160289

PATIENT
  Age: 17 Year
  Sex: Female

DRUGS (2)
  1. ACCUTANE [Suspect]
     Active Substance: ISOTRETINOIN
     Indication: Product used for unknown indication
     Dosage: RMA ISSUE DATE: 26 SEPTEMBER 2022 03:29:34 PM, 20 OCTOBER 2022 12:47:24 PM, 22 NOVEMBER 2022 10:42:5
  2. ACCUTANE [Suspect]
     Active Substance: ISOTRETINOIN
     Dosage: RMA ISSUE DATE: 20 OCTOBER 2022 12:47:24 PM, 22 NOVEMBER 2022 10:42:57 AM, 22 DECEMBER 2022 03:23:19

REACTIONS (1)
  - Full blood count abnormal [Unknown]
